FAERS Safety Report 16414696 (Version 1)
Quarter: 2019Q2

REPORT INFORMATION
  Report Type: Spontaneous
  Country: US (occurrence: US)
  Receive Date: 20190503
  Receipt Date: 20190503
  Transmission Date: 20190711
  Serious: Yes (Disabling, Other)
  Sender: FDA-Public Use
  Company Number: None

PATIENT
  Age: 87 Year
  Sex: Female
  Weight: 49.9 kg

DRUGS (11)
  1. MULVITVITE [Concomitant]
  2. AMBIEN [Concomitant]
     Active Substance: ZOLPIDEM TARTRATE
  3. ZEAXANTHIN-AREDS [Concomitant]
  4. CEFDINIR 300MG [Suspect]
     Active Substance: CEFDINIR
     Indication: CHRONIC OBSTRUCTIVE PULMONARY DISEASE
     Dosage: ?          QUANTITY:300 MG MILLIGRAM(S);?
     Route: 048
     Dates: start: 20190215, end: 20190216
  5. CARVEDILOL. [Concomitant]
     Active Substance: CARVEDILOL
  6. METAMUCIL [Concomitant]
     Active Substance: PLANTAGO SEED
  7. CIPRO [Concomitant]
     Active Substance: CIPROFLOXACIN HYDROCHLORIDE
  8. HYDROCODONE [Concomitant]
     Active Substance: HYDROCODONE
  9. CEFDINIR 300MG [Suspect]
     Active Substance: CEFDINIR
     Indication: PSEUDOMONAS BRONCHITIS
     Dosage: ?          QUANTITY:300 MG MILLIGRAM(S);?
     Route: 048
     Dates: start: 20190215, end: 20190216
  10. LEVOTHYROZINE [Concomitant]
  11. LUTEIN [Concomitant]
     Active Substance: LUTEIN

REACTIONS (4)
  - Diarrhoea [None]
  - Incontinence [None]
  - Asthenia [None]
  - Faeces discoloured [None]

NARRATIVE: CASE EVENT DATE: 20190216
